FAERS Safety Report 9514553 (Version 2)
Quarter: 2013Q3

REPORT INFORMATION
  Report Type: Spontaneous
  Country: AR (occurrence: AR)
  Receive Date: 20130911
  Receipt Date: 20130925
  Transmission Date: 20140515
  Serious: Yes (Other)
  Sender: FDA-Public Use
  Company Number: AR-AMGEN-ARGSP2013063292

PATIENT
  Age: 75 Year
  Sex: Female

DRUGS (2)
  1. ENBREL [Suspect]
     Indication: RHEUMATOID ARTHRITIS
     Dosage: 50 MG, WEEKLY
     Route: 058
     Dates: start: 20071215, end: 201211
  2. LEVOTHYROXINE [Concomitant]
     Dosage: UNK

REACTIONS (3)
  - Eye inflammation [Recovering/Resolving]
  - Cataract [Recovering/Resolving]
  - Optic neuritis [Recovering/Resolving]
